FAERS Safety Report 14034050 (Version 2)
Quarter: 2017Q4

REPORT INFORMATION
  Report Type: Report from Study
  Country: None (occurrence: DE)
  Receive Date: 20171003
  Receipt Date: 20171204
  Transmission Date: 20180321
  Serious: Yes (Hospitalization)
  Sender: FDA-Public Use
  Company Number: DE-ABBVIE-17K-062-2118127-00

PATIENT
  Age: 66 Year
  Sex: Male

DRUGS (2)
  1. DUODOPA [Suspect]
     Active Substance: CARBIDOPA\LEVODOPA
     Indication: PARKINSON^S DISEASE
     Dosage: MD: 14.0 ML, CRD: 3,3 ML/H, ED:  3.5 ML
     Route: 050
     Dates: start: 20151015, end: 2017
  2. DUODOPA [Suspect]
     Active Substance: CARBIDOPA\LEVODOPA
     Dosage: MD: 14.0 ML, CRD: 3,5 ML/H, ED: 3.5 ML
     Route: 050
     Dates: start: 2017

REACTIONS (7)
  - Myocardial infarction [Unknown]
  - Fall [Not Recovered/Not Resolved]
  - Spinal operation [Unknown]
  - Laceration [Unknown]
  - Swelling [Unknown]
  - Incontinence [Not Recovered/Not Resolved]
  - Wrong technique in device usage process [Recovered/Resolved]

NARRATIVE: CASE EVENT DATE: 201709
